FAERS Safety Report 18587421 (Version 2)
Quarter: 2020Q4

REPORT INFORMATION
  Report Type: Spontaneous
  Country: CN (occurrence: CN)
  Receive Date: 20201207
  Receipt Date: 20201214
  Transmission Date: 20210114
  Serious: Yes (Other)
  Sender: FDA-Public Use
  Company Number: CN-INCYTE CORPORATION-2020IN012086

PATIENT

DRUGS (3)
  1. STANOZOLOL [Concomitant]
     Active Substance: STANOZOLOL
     Indication: TINEA INFECTION
     Dosage: UNK
     Route: 065
     Dates: start: 202005
  2. RIVAROXABAN [Concomitant]
     Active Substance: RIVAROXABAN
     Indication: VENOUS THROMBOSIS
     Dosage: 15 MG, QD
     Route: 065
  3. JAKAVI [Suspect]
     Active Substance: RUXOLITINIB
     Indication: MYELOFIBROSIS
     Dosage: 3 DF (3 TABLETS EACH IN THE MORNING AND EVENING, 3 BOXES EACH MONTH)
     Route: 048
     Dates: start: 202005, end: 202010

REACTIONS (3)
  - Pneumonia [Not Recovered/Not Resolved]
  - Lung disorder [Unknown]
  - Pyrexia [Recovered/Resolved]

NARRATIVE: CASE EVENT DATE: 202005
